FAERS Safety Report 5314187-X (Version None)
Quarter: 2007Q3

REPORT INFORMATION
  Report Type: 
  Country: None (occurrence: None)
  Receive Date: 20070501
  Receipt Date: 20070419
  Transmission Date: 20080115
  Serious: Yes (Hospitalization)
  Sender: FDA-Public Use
  Company Number: FR-MERCK-0608FRA00032

PATIENT
  Age: 80 Year
  Sex: Female
  Weight: 65 kg

DRUGS (7)
  1. ZETIA [Suspect]
     Indication: HYPERCHOLESTEROLAEMIA
     Route: 048
     Dates: start: 20060101, end: 20060710
  2. ENOXAPARIN SODIUM [Suspect]
     Indication: THROMBOSIS PROPHYLAXIS
     Route: 058
     Dates: start: 20060601
  3. OMEPRAZOLE [Suspect]
     Route: 048
     Dates: end: 20060720
  4. INDAPAMIDE AND PERINDOPRIL ERBUMINE [Suspect]
     Indication: HYPERTENSION
     Route: 048
     Dates: end: 20060710
  5. NEBIVOLOL HCL [Suspect]
     Indication: HYPERTENSION
     Route: 048
     Dates: end: 20060720
  6. MOXONIDINE [Suspect]
     Indication: HYPERTENSION
     Route: 048
  7. LORAZEPAM [Concomitant]
     Route: 048

REACTIONS (2)
  - CRYOGLOBULINAEMIA [None]
  - LEUKOCYTOCLASTIC VASCULITIS [None]
